FAERS Safety Report 7830329-6 (Version None)
Quarter: 2011Q4

REPORT INFORMATION
  Report Type: 
  Country: None (occurrence: None)
  Receive Date: 20111021
  Receipt Date: 20111017
  Transmission Date: 20120403
  Serious: Yes (Other)
  Sender: FDA-Public Use
  Company Number: DE-BRISTOL-MYERS SQUIBB COMPANY-16175911

PATIENT
  Age: 47 Year
  Sex: Male

DRUGS (2)
  1. ABILIFY [Suspect]
  2. ZIPRASIDONE HYDROCHLORIDE [Concomitant]

REACTIONS (1)
  - ARRHYTHMIA [None]
